FAERS Safety Report 11424465 (Version 1)
Quarter: 2015Q3

REPORT INFORMATION
  Report Type: Spontaneous
  Country: US (occurrence: US)
  Receive Date: 20150827
  Receipt Date: 20150827
  Transmission Date: 20151125
  Serious: Yes (Other)
  Sender: FDA-Public Use
  Company Number: US-SA-2015SA022784

PATIENT
  Sex: Female

DRUGS (22)
  1. OMEPRAZOLE. [Concomitant]
     Active Substance: OMEPRAZOLE
  2. VITAMIN B COMPLEX [Concomitant]
     Active Substance: CYANOCOBALAMIN\DEXPANTHENOL\NIACINAMIDE\PYRIDOXINE HYDROCHLORIDE\RIBOFLAVIN 5^-PHOSPHATE SODIUM\THIAMINE HYDROCHLORIDE\VITAMIN B COMPLEX
  3. CYANOCOBALAMIN. [Concomitant]
     Active Substance: CYANOCOBALAMIN
     Dosage: 1 CC INJECTION TWICE MONTHLY/ SYRINGES
  4. METOPROLOL [Concomitant]
     Active Substance: METOPROLOL
  5. OXYGEN. [Concomitant]
     Active Substance: OXYGEN
     Dosage: 2/L, WHILE ON CPAP AT NIGHT
  6. NITROLINGUAL [Concomitant]
     Active Substance: NITROGLYCERIN
     Indication: CHEST PAIN
     Dosage: 1 TO 2 SPRAYS FOR A MAXIMUM OF 3 SPRAYS WITHIN 15 MINUTES
     Route: 060
  7. FIORICET [Concomitant]
     Active Substance: ACETAMINOPHEN\BUTALBITAL\CAFFEINE
     Indication: HEADACHE
     Dosage: EVERY 6 HOURS
     Route: 048
  8. MULTAQ [Suspect]
     Active Substance: DRONEDARONE
     Route: 065
  9. SPIRONOLACTONE. [Concomitant]
     Active Substance: SPIRONOLACTONE
  10. PULMICORT FLEXHALER [Concomitant]
     Active Substance: BUDESONIDE
     Dosage: 2 PUFFS BY MOUTH TWICE DAILY
     Route: 048
  11. ASPIRIN. [Concomitant]
     Active Substance: ASPIRIN
     Dosage: ENTERIC COATED TABLET
  12. FIORICET [Concomitant]
     Active Substance: ACETAMINOPHEN\BUTALBITAL\CAFFEINE
     Indication: PAIN
     Dosage: EVERY 6 HOURS
     Route: 048
  13. TRIAMCINOLONE [Concomitant]
     Active Substance: TRIAMCINOLONE
     Indication: RASH
     Dosage: TWICE DAILY
  14. TIKOSYN [Concomitant]
     Active Substance: DOFETILIDE
  15. LEVOTHYROXINE. [Concomitant]
     Active Substance: LEVOTHYROXINE
  16. WARFARIN [Concomitant]
     Active Substance: WARFARIN
  17. CLONAZEPAM. [Concomitant]
     Active Substance: CLONAZEPAM
     Indication: ANXIETY
     Dosage: UPTO TWICE DAILY
  18. VITAMIN D [Concomitant]
     Active Substance: CHOLECALCIFEROL
     Indication: SUPPLEMENTATION THERAPY
  19. AVASTIN [Concomitant]
     Active Substance: BEVACIZUMAB
  20. SIMVASTATIN. [Concomitant]
     Active Substance: SIMVASTATIN
  21. ARTIFICIAL TEARS [Concomitant]
     Active Substance: GLYCERIN\HYPROMELLOSES\POLYETHYLENE GLYCOL 400
     Indication: DRY EYE
     Dosage: 2 DROPS TO BOTH EYES, LUBRICATING SOLUTION
  22. TRIAMCINOLONE [Concomitant]
     Active Substance: TRIAMCINOLONE
     Indication: PRURITUS
     Dosage: TWICE DAILY

REACTIONS (4)
  - Condition aggravated [Unknown]
  - Atrial fibrillation [Unknown]
  - Fatigue [Unknown]
  - Atrial flutter [Unknown]
